FAERS Safety Report 7273198-8 (Version None)
Quarter: 2011Q1

REPORT INFORMATION
  Report Type: 
  Country: None (occurrence: None)
  Receive Date: 20110203
  Receipt Date: 20110125
  Transmission Date: 20110831
  Serious: Yes (Other)
  Sender: FDA-Public Use
  Company Number: US-JNJFOC-20101207282

PATIENT
  Sex: Male
  Weight: 92.08 kg

DRUGS (5)
  1. ZYRTEC [Concomitant]
  2. SIMVASTATIN [Concomitant]
     Indication: HYPERCHOLESTEROLAEMIA
  3. REMICADE [Suspect]
     Indication: CROHN'S DISEASE
     Route: 042
  4. NEXIUM [Concomitant]
     Indication: GASTROOESOPHAGEAL REFLUX DISEASE
  5. REMICADE [Suspect]
     Route: 042

REACTIONS (1)
  - AMNESIA [None]
